FAERS Safety Report 18314720 (Version 4)
Quarter: 2022Q1

REPORT INFORMATION
  Report Type: Other
  Country: CA (occurrence: CA)
  Receive Date: 20200925
  Receipt Date: 20220225
  Transmission Date: 20220423
  Serious: Yes (Death, Hospitalization, Other)
  Sender: FDA-Public Use
  Company Number: 000734805

PATIENT
  Age: 58 Year
  Sex: Female

DRUGS (8)
  1. ANASTROZOLE [Suspect]
     Active Substance: ANASTROZOLE
     Indication: Breast cancer
     Dosage: UNK
     Route: 065
  2. CAPECITABINE [Suspect]
     Active Substance: CAPECITABINE
     Indication: Product used for unknown indication
     Dosage: UNK
     Route: 065
  3. LETROZOLE [Suspect]
     Active Substance: LETROZOLE
     Indication: Breast cancer
     Dosage: UNK
     Route: 065
  4. TAMOXIFEN [Suspect]
     Active Substance: TAMOXIFEN
     Indication: Product used for unknown indication
     Dosage: UNK
     Route: 065
  5. GOSERELIN [Suspect]
     Active Substance: GOSERELIN
     Indication: Product used for unknown indication
     Dosage: UNK
     Route: 065
  6. AFINITOR [Suspect]
     Active Substance: EVEROLIMUS
     Indication: Breast cancer
     Dosage: 5 MILLIGRAM
     Route: 048
  7. AFINITOR [Suspect]
     Active Substance: EVEROLIMUS
     Dosage: 10 MILLIGRAM
     Route: 065
  8. AFINITOR [Suspect]
     Active Substance: EVEROLIMUS
     Dosage: 10 MILLIGRAM, QD
     Route: 048

REACTIONS (9)
  - Death [Fatal]
  - Platelet count increased [Unknown]
  - Malignant neoplasm progression [Unknown]
  - Malaise [Unknown]
  - Breast cancer metastatic [Unknown]
  - Ascites [Unknown]
  - Blood bilirubin increased [Unknown]
  - Platelet count decreased [Unknown]
  - Drug ineffective [Unknown]
